FAERS Safety Report 17255857 (Version 1)
Quarter: 2020Q1

REPORT INFORMATION
  Report Type: Report from Study
  Country: KR (occurrence: KR)
  Receive Date: 20200110
  Receipt Date: 20200110
  Transmission Date: 20200409
  Serious: Yes (Other)
  Sender: FDA-Public Use
  Company Number: KR-ROCHE-1911264

PATIENT
  Age: 42 Year
  Sex: Female

DRUGS (87)
  1. TAMOXIFEN [Concomitant]
     Active Substance: TAMOXIFEN
     Route: 048
     Dates: start: 20161214
  2. BETMIGA [Concomitant]
     Active Substance: MIRABEGRON
     Route: 048
     Dates: start: 20170206, end: 20170307
  3. ETRAVIL [Concomitant]
     Active Substance: AMITRIPTYLINE HYDROCHLORIDE
     Route: 048
     Dates: start: 20160309
  4. DEXAMETHASONE. [Concomitant]
     Active Substance: DEXAMETHASONE
     Route: 042
     Dates: start: 20160920, end: 20160920
  5. MECKOOL [Concomitant]
     Route: 030
     Dates: start: 20160920, end: 20160920
  6. PENIRAMIN [Concomitant]
     Route: 042
     Dates: start: 20160830, end: 20160830
  7. GASMOTIN [Concomitant]
     Active Substance: MOSAPRIDE CITRATE
     Route: 048
     Dates: start: 20160712, end: 20160722
  8. GASMOTIN [Concomitant]
     Active Substance: MOSAPRIDE CITRATE
     Route: 048
     Dates: start: 20160809, end: 20160815
  9. MOTILITONE [Concomitant]
     Active Substance: HERBALS
     Route: 048
     Dates: start: 20160902, end: 20160922
  10. ESOMEPRAZOLE. [Concomitant]
     Active Substance: ESOMEPRAZOLE MAGNESIUM
     Route: 048
     Dates: start: 20160818, end: 20160819
  11. ESOMEPRAZOLE. [Concomitant]
     Active Substance: ESOMEPRAZOLE MAGNESIUM
     Route: 048
     Dates: start: 20160830, end: 20160903
  12. MAGNESIUM OXIDE. [Concomitant]
     Active Substance: MAGNESIUM OXIDE
     Route: 048
     Dates: start: 20160830, end: 20160901
  13. FLOMOX [CEFCAPENE PIVOXIL HYDROCHLORIDE] [Concomitant]
     Active Substance: CEFCAPENE PIVOXIL HYDROCHLORIDE
     Route: 048
     Dates: start: 20161128, end: 20161130
  14. MACPERAN [Concomitant]
     Active Substance: METOCLOPRAMIDE HYDROCHLORIDE
     Route: 048
     Dates: start: 20160830, end: 20160901
  15. MACPERAN [Concomitant]
     Active Substance: METOCLOPRAMIDE HYDROCHLORIDE
     Route: 048
     Dates: start: 20160920, end: 20160922
  16. ABNOBAVISCUM F [Concomitant]
     Route: 058
     Dates: start: 20160725, end: 20160725
  17. GRASIN [Concomitant]
     Dosage: 300 OTHERS
     Route: 058
     Dates: start: 20160818, end: 20160818
  18. STOGAR [Concomitant]
     Active Substance: LAFUTIDINE
     Route: 048
     Dates: start: 20160722, end: 20160804
  19. ULTRACET [Concomitant]
     Active Substance: ACETAMINOPHEN\TRAMADOL HYDROCHLORIDE
     Dosage: 3 OTHERS
     Route: 048
     Dates: start: 20161128, end: 20161128
  20. BETMIGA [Concomitant]
     Active Substance: MIRABEGRON
     Indication: HYPERTONIC BLADDER
     Route: 048
     Dates: start: 20170109, end: 20170207
  21. BUP-4 [Concomitant]
     Active Substance: PROPIVERINE
     Indication: HYPERTONIC BLADDER
     Route: 048
     Dates: start: 20170309
  22. DEXAMETHASONE. [Concomitant]
     Active Substance: DEXAMETHASONE
     Route: 042
     Dates: start: 20160712, end: 20160712
  23. MECKOOL [Concomitant]
     Route: 030
     Dates: start: 20160830, end: 20160830
  24. CAROL-F [Concomitant]
     Dosage: 2 TABLET
     Route: 048
     Dates: start: 20160712, end: 20160718
  25. CAROL-F [Concomitant]
     Dosage: 2 TABLET
     Route: 048
     Dates: start: 20160712, end: 20160722
  26. GASMOTIN [Concomitant]
     Active Substance: MOSAPRIDE CITRATE
     Route: 048
     Dates: start: 20160712, end: 20160718
  27. MACPERAN [Concomitant]
     Active Substance: METOCLOPRAMIDE HYDROCHLORIDE
     Route: 048
     Dates: start: 20160712, end: 20160714
  28. ABNOBAVISCUM F [Concomitant]
     Route: 058
     Dates: start: 20160810, end: 20160810
  29. ABNOBAVISCUM F [Concomitant]
     Route: 058
     Dates: start: 20160815, end: 20160815
  30. GRASIN [Concomitant]
     Dosage: 150 OTHERS
     Route: 058
     Dates: start: 20160721, end: 20160721
  31. STOGAR [Concomitant]
     Active Substance: LAFUTIDINE
     Route: 048
     Dates: start: 20161104, end: 20161124
  32. ULTRACET [Concomitant]
     Active Substance: ACETAMINOPHEN\TRAMADOL HYDROCHLORIDE
     Dosage: 3 OTHERS
     Route: 048
     Dates: start: 20160902, end: 20160922
  33. DIAZEPAM. [Concomitant]
     Active Substance: DIAZEPAM
     Route: 048
     Dates: start: 20160920, end: 20160922
  34. TRASTUZUMAB. [Suspect]
     Active Substance: TRASTUZUMAB
     Indication: HER-2 POSITIVE BREAST CANCER
     Dosage: ADMINISTERED DATE: 09/AUG/2016, 30/AUG/2016, 20/SEP/2016, 11/OCT/2016, 01/NOV/2016, 22/NOV/2016, 12/
     Route: 058
     Dates: start: 20160712
  35. CURAN [Concomitant]
     Active Substance: RANITIDINE HYDROCHLORIDE
     Route: 042
     Dates: start: 20160712, end: 20160712
  36. PENIRAMIN [Concomitant]
     Route: 042
     Dates: start: 20160809, end: 20160809
  37. GASMOTIN [Concomitant]
     Active Substance: MOSAPRIDE CITRATE
     Route: 048
     Dates: start: 20160920, end: 20160922
  38. NEURONTIN [Concomitant]
     Active Substance: GABAPENTIN
     Route: 048
     Dates: start: 20160712, end: 20160801
  39. ABNOBAVISCUM F [Concomitant]
     Route: 058
     Dates: start: 20160808, end: 20160808
  40. CLANZA CR [Concomitant]
     Active Substance: ACECLOFENAC
     Route: 048
     Dates: start: 20161104, end: 20161124
  41. ULTRACET [Concomitant]
     Active Substance: ACETAMINOPHEN\TRAMADOL HYDROCHLORIDE
     Dosage: 3 OTHERS
     Route: 048
     Dates: start: 20161104, end: 20161124
  42. ESOMEPRAZOLE. [Concomitant]
     Active Substance: ESOMEPRAZOLE MAGNESIUM
     Route: 048
     Dates: start: 20170124, end: 20170213
  43. MAGNESIUM OXIDE. [Concomitant]
     Active Substance: MAGNESIUM OXIDE
     Route: 048
     Dates: start: 20160920, end: 20160922
  44. ENAFON [Concomitant]
     Route: 048
     Dates: start: 20170206, end: 20170307
  45. DEXAMETHASONE. [Concomitant]
     Active Substance: DEXAMETHASONE
     Route: 042
     Dates: start: 20160830, end: 20160830
  46. MECKOOL [Concomitant]
     Route: 030
     Dates: start: 20160809, end: 20160809
  47. CURAN [Concomitant]
     Active Substance: RANITIDINE HYDROCHLORIDE
     Route: 042
     Dates: start: 20160712, end: 20160718
  48. PENIRAMIN [Concomitant]
     Route: 042
     Dates: start: 20160920, end: 20160920
  49. ABNOBAVISCUM F [Concomitant]
     Route: 058
     Dates: start: 20160722, end: 20160722
  50. ABNOBAVISCUM F [Concomitant]
     Route: 058
     Dates: start: 20160803, end: 20160803
  51. ABNOBAVISCUM F [Concomitant]
     Route: 058
     Dates: start: 20160812, end: 20160812
  52. CLANZA CR [Concomitant]
     Active Substance: ACECLOFENAC
     Route: 048
     Dates: start: 20160722, end: 20160804
  53. HEPARIN SODIUM. [Concomitant]
     Active Substance: HEPARIN SODIUM
     Route: 042
     Dates: start: 20160809, end: 20160809
  54. URSA [Concomitant]
     Active Substance: URSODIOL
     Route: 048
     Dates: start: 20170307, end: 20170327
  55. DEXAMETHASONE. [Concomitant]
     Active Substance: DEXAMETHASONE
     Route: 042
     Dates: start: 20160809, end: 20160809
  56. DEXAMETHASONE. [Concomitant]
     Active Substance: DEXAMETHASONE
     Route: 048
     Dates: start: 20160920, end: 20160922
  57. CURAN [Concomitant]
     Active Substance: RANITIDINE HYDROCHLORIDE
     Route: 042
     Dates: start: 20160809, end: 20160809
  58. PENIRAMIN [Concomitant]
     Route: 042
     Dates: start: 20160712, end: 20160712
  59. GASMOTIN [Concomitant]
     Active Substance: MOSAPRIDE CITRATE
     Route: 048
     Dates: start: 20160830, end: 20160901
  60. CLANZA CR [Concomitant]
     Active Substance: ACECLOFENAC
     Route: 048
     Dates: start: 20160902, end: 20160922
  61. MOTILITONE [Concomitant]
     Active Substance: HERBALS
     Route: 048
     Dates: start: 20161104, end: 20161124
  62. HEPARIN SODIUM. [Concomitant]
     Active Substance: HEPARIN SODIUM
     Route: 042
     Dates: start: 20160920, end: 20160920
  63. ESOMEPRAZOLE. [Concomitant]
     Active Substance: ESOMEPRAZOLE MAGNESIUM
     Route: 048
     Dates: start: 20160920, end: 20160924
  64. DIAZEPAM. [Concomitant]
     Active Substance: DIAZEPAM
     Route: 048
     Dates: start: 20160830, end: 20160901
  65. TAMOXIFEN [Concomitant]
     Active Substance: TAMOXIFEN
     Indication: BREAST CANCER
     Route: 048
     Dates: start: 20161213
  66. BETMIGA [Concomitant]
     Active Substance: MIRABEGRON
     Route: 048
     Dates: start: 20170309
  67. DEXAMETHASONE. [Concomitant]
     Active Substance: DEXAMETHASONE
     Route: 048
     Dates: start: 20160830, end: 20160901
  68. MECKOOL [Concomitant]
     Route: 030
     Dates: start: 20160712, end: 20160712
  69. CURAN [Concomitant]
     Active Substance: RANITIDINE HYDROCHLORIDE
     Route: 048
     Dates: start: 20160721, end: 20160722
  70. CURAN [Concomitant]
     Active Substance: RANITIDINE HYDROCHLORIDE
     Route: 048
     Dates: start: 20160809, end: 20160815
  71. CAROL-F [Concomitant]
     Dosage: 3 TABLET
     Route: 048
     Dates: start: 20160818, end: 20160819
  72. ABNOBAVISCUM F [Concomitant]
     Route: 058
     Dates: start: 20160727, end: 20160727
  73. ABNOBAVISCUM F [Concomitant]
     Route: 058
     Dates: start: 20160801, end: 20160801
  74. ABNOBAVISCUM F [Concomitant]
     Route: 058
     Dates: start: 20160818, end: 20161118
  75. STOGAR [Concomitant]
     Active Substance: LAFUTIDINE
     Route: 048
     Dates: start: 20160902, end: 20160922
  76. NAROPIN [Concomitant]
     Active Substance: ROPIVACAINE HYDROCHLORIDE
     Route: 048
     Dates: start: 20160722, end: 20160804
  77. DOCETAXEL. [Suspect]
     Active Substance: DOCETAXEL
     Indication: HER-2 POSITIVE BREAST CANCER
     Dosage: ADMINISTERED DATE: 09/AUG/2016, 30/AUG/2016, 20/SEP/2016
     Route: 065
     Dates: start: 20160712
  78. CURAN [Concomitant]
     Active Substance: RANITIDINE HYDROCHLORIDE
     Route: 042
     Dates: start: 20160830, end: 20160830
  79. CURAN [Concomitant]
     Active Substance: RANITIDINE HYDROCHLORIDE
     Route: 042
     Dates: start: 20160920, end: 20160920
  80. CAROL-F [Concomitant]
     Dosage: 2 TABLET
     Route: 048
     Dates: start: 20160809
  81. NEURONTIN [Concomitant]
     Active Substance: GABAPENTIN
     Route: 048
     Dates: start: 20160809, end: 20160815
  82. MACPERAN [Concomitant]
     Active Substance: METOCLOPRAMIDE HYDROCHLORIDE
     Route: 048
     Dates: start: 20160809, end: 20160811
  83. ABNOBAVISCUM F [Concomitant]
     Route: 058
     Dates: start: 20160729, end: 20160729
  84. ABNOBAVISCUM F [Concomitant]
     Route: 058
     Dates: start: 20160805, end: 20160805
  85. MOTILITONE [Concomitant]
     Active Substance: HERBALS
     Route: 048
     Dates: start: 20160722, end: 20160818
  86. ULTRACET [Concomitant]
     Active Substance: ACETAMINOPHEN\TRAMADOL HYDROCHLORIDE
     Dosage: 3 OTHERS
     Route: 048
     Dates: start: 20160722, end: 20160804
  87. ESOMEPRAZOLE. [Concomitant]
     Active Substance: ESOMEPRAZOLE MAGNESIUM
     Route: 048
     Dates: start: 20161213, end: 20170111

REACTIONS (4)
  - Paralysis [Recovered/Resolved]
  - Musculoskeletal pain [Recovered/Resolved]
  - Vaginal haemorrhage [Recovered/Resolved]
  - Abdominal pain [Recovered/Resolved]

NARRATIVE: CASE EVENT DATE: 20160712
